FAERS Safety Report 9433588 (Version 1)
Quarter: 2013Q3

REPORT INFORMATION
  Report Type: Report from Study
  Country: VE (occurrence: VE)
  Receive Date: 20130731
  Receipt Date: 20130731
  Transmission Date: 20140515
  Serious: Yes (Other)
  Sender: FDA-Public Use
  Company Number: PHHY2013VE081251

PATIENT
  Age: 75 Year
  Sex: Female

DRUGS (9)
  1. ACLASTA [Suspect]
     Indication: OSTEOPOROSIS
     Dosage: UNK
     Route: 042
     Dates: start: 2009
  2. ACLASTA [Suspect]
     Dosage: UNK
     Route: 042
     Dates: start: 20130420
  3. APROVEL [Concomitant]
     Indication: HYPERTENSION
     Dosage: UNK
  4. ARAVA [Concomitant]
     Indication: ARTHRITIS
  5. CALCIUM [Concomitant]
     Indication: ARTHRITIS
     Dosage: UNK
  6. ADALATE [Concomitant]
     Indication: HYPERTENSION
     Dosage: UNK
  7. NEBILET [Concomitant]
     Indication: HYPERTENSION
     Dosage: UNK
  8. CALCORT [Concomitant]
     Indication: ARTHRITIS
     Dosage: 15 MG, DAILY
     Route: 048
  9. IBUPROFEN [Concomitant]
     Indication: PAIN
     Dosage: UNK
     Route: 048

REACTIONS (5)
  - Spinal fracture [Not Recovered/Not Resolved]
  - Musculoskeletal pain [Not Recovered/Not Resolved]
  - Arthralgia [Not Recovered/Not Resolved]
  - Haemoglobin decreased [Unknown]
  - Pain in extremity [Not Recovered/Not Resolved]
